FAERS Safety Report 24123229 (Version 1)
Quarter: 2024Q3

REPORT INFORMATION
  Report Type: Spontaneous
  Country: US (occurrence: US)
  Receive Date: 20240723
  Receipt Date: 20240723
  Transmission Date: 20241017
  Serious: No
  Sender: OTSUKA
  Company Number: US-OTSUKA-2023_022552

PATIENT
  Sex: Male

DRUGS (3)
  1. REXULTI [Suspect]
     Active Substance: BREXPIPRAZOLE
     Indication: Major depression
     Dosage: UNK
     Route: 065
  2. REXULTI [Suspect]
     Active Substance: BREXPIPRAZOLE
     Indication: Adjuvant therapy
  3. VRAYLAR [Suspect]
     Active Substance: CARIPRAZINE
     Indication: Akathisia
     Dosage: UNK
     Route: 065

REACTIONS (3)
  - Gastrointestinal disorder [Recovered/Resolved]
  - Anxiety [Unknown]
  - Akathisia [Unknown]
